FAERS Safety Report 7156168-X (Version None)
Quarter: 2010Q4

REPORT INFORMATION
  Report Type: 
  Country: None (occurrence: None)
  Receive Date: 20101214
  Receipt Date: 20101203
  Transmission Date: 20110411
  Serious: Yes (Hospitalization)
  Sender: FDA-Public Use
  Company Number: US-AMGEN-USASP2010007929

PATIENT

DRUGS (14)
  1. PROCRIT [Suspect]
     Indication: ANAEMIA
     Dosage: 4000 UNIT, Q3WK
     Route: 058
     Dates: start: 20091101, end: 20100101
  2. PROCRIT [Suspect]
     Dosage: 15000 UNIT, UNK
     Route: 058
     Dates: start: 20100401, end: 20100604
  3. PROCRIT [Suspect]
     Dosage: 10000 UNIT, Q3WK
     Route: 058
     Dates: start: 20100901
  4. LANTUS [Concomitant]
     Indication: DIABETES MELLITUS
     Dosage: UNK
  5. JANUVIA [Concomitant]
     Indication: DIABETES MELLITUS
     Dosage: UNK
     Route: 048
  6. CLONIDINE [Concomitant]
     Indication: HYPERTENSION
     Dosage: UNK
     Route: 048
  7. LOPRESSOR [Concomitant]
     Indication: HYPERTENSION
     Dosage: UNK
     Route: 048
  8. NORVASC [Concomitant]
     Indication: HYPERTENSION
     Dosage: UNK
     Route: 048
  9. AMARYL [Concomitant]
     Indication: DIABETES MELLITUS
     Dosage: UNK
     Route: 048
  10. OCUVIT [Concomitant]
     Indication: MACULAR DEGENERATION
     Dosage: UNK
  11. SYNTHROID [Concomitant]
     Route: 048
  12. PLAVIX [Concomitant]
     Route: 048
  13. ASPIRIN [Concomitant]
     Route: 048
  14. LASIX [Concomitant]
     Route: 048

REACTIONS (4)
  - ARTHRITIS [None]
  - ASTHENIA [None]
  - BLOOD POTASSIUM INCREASED [None]
  - CARDIAC FAILURE [None]
